FAERS Safety Report 9856568 (Version 2)
Quarter: 2014Q1

REPORT INFORMATION
  Report Type: Spontaneous
  Country: US (occurrence: US)
  Receive Date: 20140130
  Receipt Date: 20140130
  Transmission Date: 20141002
  Serious: Yes (Other)
  Sender: FDA-Public Use
  Company Number: US-GILEAD-2012-0063566

PATIENT
  Sex: Male
  Weight: 132.43 kg

DRUGS (1)
  1. COMPLERA [Suspect]
     Indication: HIV INFECTION
     Dosage: UNK
     Dates: start: 201209, end: 20121016

REACTIONS (3)
  - Drug-induced liver injury [Unknown]
  - Liver function test abnormal [Recovered/Resolved]
  - Abdominal pain upper [Recovered/Resolved]
